FAERS Safety Report 7465338-2 (Version None)
Quarter: 2011Q2

REPORT INFORMATION
  Report Type: 
  Country: None (occurrence: None)
  Receive Date: 20110509
  Receipt Date: 20110503
  Transmission Date: 20111010
  Serious: Yes (Other)
  Sender: FDA-Public Use
  Company Number: US-BRISTOL-MYERS SQUIBB COMPANY-15714207

PATIENT
  Age: 69 Year
  Sex: Female
  Weight: 76 kg

DRUGS (1)
  1. ORENCIA [Suspect]
     Dates: start: 20100101

REACTIONS (4)
  - SYNOVIAL CYST [None]
  - MENISCUS LESION [None]
  - JOINT INJURY [None]
  - OEDEMA PERIPHERAL [None]
